FAERS Safety Report 8901487 (Version 2)
Quarter: 2013Q1

REPORT INFORMATION
  Report Type: Report from Study
  Country: IT (occurrence: IT)
  Receive Date: 20121108
  Receipt Date: 20130218
  Transmission Date: 20140127
  Serious: Yes (Death, Life-Threatening, Other)
  Sender: FDA-Public Use
  Company Number: IT-AMGEN-ITASP2012071295

PATIENT
  Age: 55 Year
  Sex: Female

DRUGS (3)
  1. DENOSUMAB [Suspect]
     Indication: METASTASES TO BONE
     Dosage: 120 MG, QMO
     Route: 058
     Dates: start: 20120410, end: 20120827
  2. OXYCONTIN [Concomitant]
     Dosage: 60 MG, BID
     Route: 048
     Dates: start: 201201
  3. OMEPRAZOLE [Concomitant]
     Dosage: 40 MG, QD
     Route: 048
     Dates: start: 20120101

REACTIONS (2)
  - Brain neoplasm [Fatal]
  - Disease progression [Fatal]
